FAERS Safety Report 15644288 (Version 2)
Quarter: 2018Q4

REPORT INFORMATION
  Report Type: Report from Study
  Country: JP (occurrence: JP)
  Receive Date: 20181121
  Receipt Date: 20181217
  Transmission Date: 20190205
  Serious: Yes (Hospitalization)
  Sender: FDA-Public Use
  Company Number: JP-PFIZER INC-2018460688

PATIENT
  Age: 10 Year
  Sex: Female
  Weight: 22.9 kg

DRUGS (12)
  1. GENOTROPIN GOQUICK [Concomitant]
     Active Substance: SOMATROPIN
     Indication: BLOOD GROWTH HORMONE DECREASED
     Dosage: 0.9 MG, 1X/DAY
     Route: 058
  2. HIRUDOID [Concomitant]
     Active Substance: GLYCOSAMINOGLYCANS
     Indication: DERMATITIS ATOPIC
     Dosage: UNK
     Route: 061
  3. DAIPHEN [Concomitant]
     Active Substance: SULFAMETHOXAZOLE\TRIMETHOPRIM
     Indication: INFECTION PROPHYLAXIS
     Dosage: 1 DF, UNK (0.4286 DOSAGE FORMS, 3 IN 1 WK)
     Route: 048
     Dates: start: 20180608
  4. ENEVO [Concomitant]
     Indication: NUTRITIONAL SUPPLEMENTATION
     Dosage: UNK
     Route: 048
  5. ALESION [Concomitant]
     Active Substance: EPINASTINE HYDROCHLORIDE
     Indication: DERMATITIS ATOPIC
     Dosage: 10 MG, 1X/DAY
     Route: 048
  6. SIROLIMUS. [Suspect]
     Active Substance: SIROLIMUS
     Indication: LYMPHANGIOMA
     Dosage: 1 MG, 1X/DAY
     Route: 048
     Dates: start: 20180607, end: 20180704
  7. RINDERON V [Concomitant]
     Active Substance: BETAMETHASONE VALERATE
     Indication: DERMATITIS ATOPIC
     Dosage: UNK
     Route: 061
  8. HIRUDOID [Concomitant]
     Active Substance: GLYCOSAMINOGLYCANS
     Indication: DERMATITIS ATOPIC
     Dosage: LOTION
     Route: 061
  9. SIROLIMUS. [Suspect]
     Active Substance: SIROLIMUS
     Dosage: 2 MG, 1X/DAY
     Route: 048
     Dates: start: 20180705
  10. WHITE PETROLATUM [Concomitant]
     Active Substance: PETROLATUM
     Indication: DERMATITIS ATOPIC
     Dosage: UNK
     Route: 061
  11. MUCODYNE [Concomitant]
     Active Substance: CARBOCYSTEINE
     Indication: PRODUCTIVE COUGH
     Dosage: 250 MG, 2X/DAY
     Route: 048
  12. NERISONA [Concomitant]
     Active Substance: DIFLUCORTOLONE VALERATE
     Indication: DERMATITIS ATOPIC
     Dosage: UNK
     Route: 061

REACTIONS (1)
  - Skin infection [Recovered/Resolved]

NARRATIVE: CASE EVENT DATE: 20181104
